FAERS Safety Report 6354150-3 (Version None)
Quarter: 2009Q3

REPORT INFORMATION
  Report Type: 
  Country: None (occurrence: None)
  Receive Date: 20090914
  Receipt Date: 20090902
  Transmission Date: 20100115
  Serious: Yes (Hospitalization)
  Sender: FDA-Public Use
  Company Number: GB-ROCHE-654237

PATIENT
  Age: 73 Year
  Sex: Female
  Weight: 48.2 kg

DRUGS (11)
  1. MYCOPHENOLATE MOFETIL [Suspect]
     Indication: LIVER TRANSPLANT
     Dosage: DRUG WITHDRAWN
     Route: 048
     Dates: start: 19950902, end: 20090227
  2. ALFACALCIDOL [Concomitant]
  3. ASPIRIN [Concomitant]
  4. CALCICHEW [Concomitant]
     Indication: OSTEOPOROSIS
  5. FUROSEMIDE [Concomitant]
     Indication: OEDEMA
     Dates: start: 20090306
  6. IBANDRONIC ACID [Concomitant]
     Indication: OSTEOPOROSIS
  7. LANSOPRAZOLE [Concomitant]
     Dates: end: 20090227
  8. LEVOTHYROXINE SODIUM [Concomitant]
     Indication: HYPOTHYROIDISM
  9. MULTI-VITAMIN [Concomitant]
  10. PREDNISOLONE [Concomitant]
  11. SIMVASTATIN [Concomitant]
     Indication: HYPERCHOLESTEROLAEMIA

REACTIONS (4)
  - DIARRHOEA [None]
  - ENTEROCOLITIS [None]
  - FOOD AVERSION [None]
  - WEIGHT DECREASED [None]
